FAERS Safety Report 25258291 (Version 1)
Quarter: 2025Q2

REPORT INFORMATION
  Report Type: Report from Study
  Country: CO (occurrence: CO)
  Receive Date: 20250501
  Receipt Date: 20250501
  Transmission Date: 20250716
  Serious: Yes (Death, Hospitalization)
  Sender: ABBVIE
  Company Number: CO-ABBVIE-6259970

PATIENT
  Age: 72 Year
  Sex: Female

DRUGS (1)
  1. VENCLEXTA [Suspect]
     Active Substance: VENETOCLAX
     Indication: Acute myeloid leukaemia
     Dosage: VENCLEXTA 100 MG
     Route: 048
     Dates: start: 20241004, end: 20250416

REACTIONS (3)
  - Cardiac failure [Fatal]
  - Platelet count decreased [Unknown]
  - Disease complication [Unknown]

NARRATIVE: CASE EVENT DATE: 20250401
